FAERS Safety Report 4525524-8 (Version None)
Quarter: 2004Q4

REPORT INFORMATION
  Report Type: 
  Country: None (occurrence: None)
  Receive Date: 20041208
  Receipt Date: 20041123
  Transmission Date: 20050328
  Serious: Yes (Life-Threatening, Hospitalization)
  Sender: FDA-Public Use
  Company Number: WAES 0411USA03908

PATIENT
  Age: 42 Year
  Sex: Female

DRUGS (3)
  1. DECADRON [Suspect]
     Indication: BRAIN OEDEMA
     Dosage: 2 MG/TID, PO
     Route: 048
     Dates: start: 20031118, end: 20040306
  2. INJ EDOTECARIN [Suspect]
     Indication: GLIOBLASTOMA MULTIFORME
     Dosage: 13 MG/M[2], PO
     Route: 048
     Dates: start: 20031209, end: 20040217
  3. HALDOL [Concomitant]

REACTIONS (3)
  - HYPERGLYCAEMIA [None]
  - PERSONALITY CHANGE [None]
  - PSYCHOTIC DISORDER [None]
